FAERS Safety Report 8495581-5 (Version None)
Quarter: 2012Q3

REPORT INFORMATION
  Report Type: 
  Country: None (occurrence: None)
  Receive Date: 20120709
  Receipt Date: 20120704
  Transmission Date: 20120928
  Serious: Yes (Hospitalization)
  Sender: FDA-Public Use
  Company Number: FR-SHIRE-SPV1-2012-00418

PATIENT
  Sex: Female

DRUGS (1)
  1. FIRAZYR [Suspect]
     Indication: HEREDITARY ANGIOEDEMA
     Dosage: UNK
     Dates: start: 20110221

REACTIONS (2)
  - ABDOMINAL PAIN [None]
  - OFF LABEL USE [None]
